FAERS Safety Report 24358298 (Version 2)
Quarter: 2024Q3

REPORT INFORMATION
  Report Type: Spontaneous
  Country: FR (occurrence: FR)
  Receive Date: 20240924
  Receipt Date: 20240930
  Transmission Date: 20241016
  Serious: Yes (Other)
  Sender: SANOFI AVENTIS
  Company Number: None

PATIENT
  Age: 31 Year
  Sex: Female

DRUGS (7)
  1. ENOXAPARIN SODIUM [Suspect]
     Active Substance: ENOXAPARIN SODIUM
     Indication: Thrombosis prophylaxis
     Dosage: 4000.000[IU] INTERNATION UNIT(S)
     Route: 058
     Dates: start: 20240820
  2. ACETAMINOPHEN [Suspect]
     Active Substance: ACETAMINOPHEN
     Indication: Analgesic intervention supportive therapy
     Dosage: 1 G
     Route: 042
     Dates: start: 20240818
  3. CLINDAMYCIN HYDROCHLORIDE [Suspect]
     Active Substance: CLINDAMYCIN HYDROCHLORIDE
     Indication: Peritonitis
     Dosage: 600 MG
     Route: 042
     Dates: start: 20240824
  4. CEFOTAXIME SODIUM [Suspect]
     Active Substance: CEFOTAXIME SODIUM
     Indication: Peritonitis
     Dosage: 1 G
     Route: 042
     Dates: start: 20240824, end: 20240830
  5. METRONIDAZOLE [Suspect]
     Active Substance: METRONIDAZOLE
     Indication: Peritonitis
     Dosage: 500 MG
     Route: 042
     Dates: start: 20240819, end: 20240828
  6. IOMERON [Suspect]
     Active Substance: IOMEPROL
     Indication: Scan
     Dosage: 2 DF, TOTAL
     Route: 042
     Dates: start: 20240819, end: 20240824
  7. OXYCODONE HYDROCHLORIDE [Suspect]
     Active Substance: OXYCODONE HYDROCHLORIDE
     Indication: Analgesic intervention supportive therapy
     Dosage: 5 MG
     Route: 048
     Dates: start: 20240825

REACTIONS (2)
  - Rash maculo-papular [Not Recovered/Not Resolved]
  - Erythema [Not Recovered/Not Resolved]

NARRATIVE: CASE EVENT DATE: 20240830
